FAERS Safety Report 24395872 (Version 1)
Quarter: 2024Q4

REPORT INFORMATION
  Report Type: Spontaneous
  Country: US (occurrence: US)
  Receive Date: 20241004
  Receipt Date: 20241004
  Transmission Date: 20250114
  Serious: Yes (Other)
  Sender: AMGEN
  Company Number: US-AMGEN-USASP2024192875

PATIENT
  Age: 30 Year
  Sex: Male

DRUGS (1)
  1. PREDNISONE [Suspect]
     Active Substance: PREDNISONE
     Indication: Uveitis
     Dosage: 20 MILLIGRAM, QD
     Route: 065

REACTIONS (6)
  - Tubulointerstitial nephritis [Unknown]
  - Sarcoidosis [Unknown]
  - Osteonecrosis [Unknown]
  - Skeletal injury [Unknown]
  - Polydipsia [Unknown]
  - Polyuria [Unknown]
